FAERS Safety Report 4815082-2 (Version None)
Quarter: 2005Q4

REPORT INFORMATION
  Report Type: 
  Country: None (occurrence: None)
  Receive Date: 20051028
  Receipt Date: 20051026
  Transmission Date: 20060501
  Serious: Yes (Death, Hospitalization)
  Sender: FDA-Public Use
  Company Number: IT-ABBOTT-05P-083-0315606-00

PATIENT
  Sex: Female
  Weight: 50 kg

DRUGS (8)
  1. HUMIRA [Suspect]
     Indication: RHEUMATOID ARTHRITIS
     Route: 058
     Dates: start: 20050623
  2. METHYLPREDNISOLONE [Concomitant]
     Indication: RHEUMATOID ARTHRITIS
     Dates: start: 20050715, end: 20051022
  3. VERAPAMIL HYDROCHLORIDE [Concomitant]
     Indication: SUPRAVENTRICULAR EXTRASYSTOLES
     Dates: start: 20050831, end: 20051022
  4. ALENDRONATE SODIUM [Concomitant]
     Indication: OSTEOPOROSIS
     Dates: start: 20041012, end: 20050101
  5. LEKOVIT CA [Concomitant]
     Indication: OSTEOPOROSIS
     Dates: start: 20040611, end: 20050101
  6. CALCITONIN [Concomitant]
     Indication: OSTEOPOROSIS
     Dates: start: 20050611
  7. OMEPRAZOLE [Concomitant]
     Indication: GASTRITIS
     Dates: start: 20040611, end: 20050101
  8. HUMIRA (COMMERCIAL) [Concomitant]
     Indication: RHEUMATOID ARTHRITIS
     Route: 058
     Dates: start: 20040923

REACTIONS (3)
  - AMNESIA [None]
  - CONVULSION [None]
  - VOMITING [None]
